FAERS Safety Report 12572867 (Version 3)
Quarter: 2016Q3

REPORT INFORMATION
  Report Type: Spontaneous
  Country: JP (occurrence: JP)
  Receive Date: 20160720
  Receipt Date: 20160902
  Transmission Date: 20161109
  Serious: Yes (Other)
  Sender: FDA-Public Use
  Company Number: JP-TAKEDA-2016TJP014508

PATIENT
  Age: 57 Year
  Sex: Male
  Weight: 80 kg

DRUGS (20)
  1. ACTOS [Suspect]
     Active Substance: PIOGLITAZONE HYDROCHLORIDE
     Indication: TYPE 2 DIABETES MELLITUS
     Dosage: 15 MG, QD
     Route: 048
     Dates: start: 20070315, end: 20070722
  2. ACTOS [Suspect]
     Active Substance: PIOGLITAZONE HYDROCHLORIDE
     Dosage: 15 MG, QD
     Route: 048
     Dates: start: 20071127, end: 20100715
  3. VOGLIBOSE [Concomitant]
     Active Substance: VOGLIBOSE
     Dosage: 0.3 MG, BID
     Route: 048
  4. AMARYL [Concomitant]
     Active Substance: GLIMEPIRIDE
     Dosage: 1 MG, BID
     Route: 048
     Dates: start: 20111226, end: 20130825
  5. GLIMICRON [Concomitant]
     Active Substance: GLICLAZIDE
     Dosage: 20 MG, BID
     Route: 048
     Dates: start: 20061006, end: 20070416
  6. BEZATOL [Concomitant]
     Active Substance: BEZAFIBRATE
     Dosage: 1 DF, BID
     Route: 048
     Dates: start: 20000321
  7. BEZATOL [Concomitant]
     Active Substance: BEZAFIBRATE
     Dosage: 1 DF, BID
     Route: 048
     Dates: start: 20061006
  8. MELBIN                             /00082702/ [Concomitant]
     Active Substance: METFORMIN HYDROCHLORIDE
     Dosage: 1 DF, UNK
     Route: 048
     Dates: start: 20061226, end: 20070124
  9. LIOVEL COMBINATION TABLETS LD [Suspect]
     Active Substance: ALOGLIPTIN BENZOATE\PIOGLITAZONE HYDROCHLORIDE
     Indication: TYPE 2 DIABETES MELLITUS
     Dosage: 1 DF, QD
     Route: 048
     Dates: start: 20140123, end: 20160330
  10. MELBIN                             /00082702/ [Concomitant]
     Active Substance: METFORMIN HYDROCHLORIDE
     Dosage: 2 DF, UNK
     Route: 048
     Dates: start: 20070905
  11. AMARYL [Concomitant]
     Active Substance: GLIMEPIRIDE
     Dosage: 2.5 MG, UNK
     Route: 048
     Dates: start: 20130826
  12. JANUVIA [Concomitant]
     Active Substance: SITAGLIPTIN PHOSPHATE
     Dosage: 1 DF, UNK
     Route: 048
     Dates: start: 20130110
  13. ACTOS [Suspect]
     Active Substance: PIOGLITAZONE HYDROCHLORIDE
     Dosage: 30 MG, QD
     Route: 048
     Dates: start: 20070723, end: 20071126
  14. GLIMICRON [Concomitant]
     Active Substance: GLICLAZIDE
     Dosage: 10 MG, BID
     Route: 048
     Dates: start: 20070417
  15. GLIMICRON [Concomitant]
     Active Substance: GLICLAZIDE
     Dosage: 20 MG, BID
     Route: 048
     Dates: end: 20090302
  16. AMARYL [Concomitant]
     Active Substance: GLIMEPIRIDE
     Dosage: 2 MG, UNK
     Route: 048
     Dates: end: 20140924
  17. GLIMICRON [Concomitant]
     Active Substance: GLICLAZIDE
     Dosage: 20 UNK, UNK
     Route: 048
     Dates: start: 20090306, end: 20100519
  18. MELBIN                             /00082702/ [Concomitant]
     Active Substance: METFORMIN HYDROCHLORIDE
     Dosage: 3 DF, UNK
     Route: 048
     Dates: start: 20070125, end: 20070904
  19. AMARYL [Concomitant]
     Active Substance: GLIMEPIRIDE
     Dosage: 0.5 MG, QD
     Route: 048
     Dates: start: 20100520, end: 20110524
  20. AMARYL [Concomitant]
     Active Substance: GLIMEPIRIDE
     Dosage: 1 MG, QD
     Route: 048
     Dates: start: 20110525, end: 20111225

REACTIONS (2)
  - Renal cancer [Recovered/Resolved]
  - Ureterolithiasis [Unknown]

NARRATIVE: CASE EVENT DATE: 200803
